FAERS Safety Report 4391262-8 (Version None)
Quarter: 2004Q2

REPORT INFORMATION
  Report Type: 
  Country: None (occurrence: None)
  Receive Date: 20040621
  Receipt Date: 20031212
  Transmission Date: 20050107
  Serious: Yes (Hospitalization, Other)
  Sender: FDA-Public Use
  Company Number: USA-2003-0003924

PATIENT
  Age: 34 Year
  Sex: Male
  Weight: 102 kg

DRUGS (29)
  1. OXYCONTIN [Suspect]
     Indication: PAIN
     Dosage: 10 MG, TID, ORAL
     Route: 048
     Dates: start: 19980717, end: 20020101
  2. LORTAB [Concomitant]
  3. FENTANYL [Concomitant]
  4. KLONOPIN [Concomitant]
  5. ZANAFLEX [Concomitant]
  6. PROZAC [Concomitant]
  7. ROBAXIN [Concomitant]
  8. REMERON [Concomitant]
  9. AMBIEN [Concomitant]
  10. NIZORAL [Concomitant]
  11. CELESTONE [Concomitant]
  12. ANCEF [Concomitant]
  13. LEVAQUIN [Concomitant]
  14. CORGARD [Concomitant]
  15. VALIUM [Concomitant]
  16. KEFLEX [Concomitant]
  17. SOMA [Concomitant]
  18. TRIAMTERENE AND HYDROCHLOROTHIAZIDE [Concomitant]
  19. NADOLOL [Concomitant]
  20. BENZONATATE [Concomitant]
  21. CLARITIN [Concomitant]
  22. RELAFEN [Concomitant]
  23. ALPRAZOLAM [Concomitant]
  24. TRAZODONE HCL [Concomitant]
  25. NEURONTIN [Concomitant]
  26. PERCOCET [Concomitant]
  27. METHADONE HCL [Concomitant]
  28. MORPHINE SULFATE [Concomitant]
  29. XANAX [Concomitant]

REACTIONS (24)
  - AGITATION [None]
  - ANXIETY [None]
  - ASTHENIA [None]
  - BLOOD PRESSURE INCREASED [None]
  - CONSTIPATION [None]
  - DEPRESSION [None]
  - DIARRHOEA [None]
  - DIZZINESS [None]
  - DRUG ABUSER [None]
  - DRUG DEPENDENCE [None]
  - DRUG INTERACTION [None]
  - DRUG TOLERANCE [None]
  - DRUG WITHDRAWAL SYNDROME [None]
  - DYSARTHRIA [None]
  - FALL [None]
  - HEART RATE INCREASED [None]
  - HYPOAESTHESIA [None]
  - INSOMNIA [None]
  - NAUSEA [None]
  - PAIN [None]
  - PANIC ATTACK [None]
  - SKIN CANDIDA [None]
  - SUICIDAL IDEATION [None]
  - WHEEZING [None]
